FAERS Safety Report 6554472-7 (Version None)
Quarter: 2010Q1

REPORT INFORMATION
  Report Type: 
  Country: None (occurrence: None)
  Receive Date: 20100127
  Receipt Date: 20100122
  Transmission Date: 20100710
  Serious: No
  Sender: FDA-Public Use
  Company Number: US-B.I. PHARMACEUTICALS,INC./RIDGEFIELD-2009-BP-14477BP

PATIENT
  Sex: Female

DRUGS (10)
  1. SPIRIVA [Suspect]
     Indication: PLEURAL EFFUSION
     Dosage: 18 MCG
     Route: 055
     Dates: start: 20091106, end: 20091120
  2. SPIRIVA [Suspect]
     Indication: DYSPNOEA
  3. LASIX [Concomitant]
     Indication: PLEURAL EFFUSION
  4. FOSAMAX [Concomitant]
     Indication: BONE DENSITY DECREASED
  5. CALCIUM +D [Concomitant]
     Dosage: 1200 MG
  6. MULTI-VITAMIN [Concomitant]
  7. VITAMIN C [Concomitant]
     Dosage: 500 MG
  8. ASPIRIN [Concomitant]
     Dosage: 81 MG
  9. FUROSEMIDE [Concomitant]
     Dosage: 20 MG
  10. ALENDRONATE SODIUM [Concomitant]

REACTIONS (2)
  - APHONIA [None]
  - DYSPHONIA [None]
